FAERS Safety Report 9138215 (Version 2)
Quarter: 2013Q1

REPORT INFORMATION
  Report Type: Spontaneous
  Country: GB (occurrence: GB)
  Receive Date: 20130304
  Receipt Date: 20130319
  Transmission Date: 20140127
  Serious: Yes (Other)
  Sender: FDA-Public Use
  Company Number: GB-MERCK-1303GBR000527

PATIENT
  Age: 48 Year
  Sex: Female
  Weight: 53 kg

DRUGS (6)
  1. JANUVIA [Suspect]
     Indication: DIABETES MELLITUS
     Dosage: 1 DF, QD
     Route: 048
     Dates: start: 20130201, end: 20130206
  2. FERROUS FUMARATE [Concomitant]
  3. LANSOPRAZOLE [Concomitant]
  4. METFORMIN [Concomitant]
  5. PRAVASTATIN SODIUM [Concomitant]
  6. VALSARTAN [Concomitant]

REACTIONS (2)
  - Tenderness [Recovering/Resolving]
  - Local swelling [Recovering/Resolving]
